FAERS Safety Report 21331032 (Version 1)
Quarter: 2022Q3

REPORT INFORMATION
  Report Type: Spontaneous
  Country: US (occurrence: None)
  Receive Date: 20220914
  Receipt Date: 20220914
  Transmission Date: 20221027
  Serious: Yes (Other)
  Sender: FDA-Public Use
  Company Number: US-VistaPharm, Inc.-VER202209-000772

PATIENT
  Sex: Female

DRUGS (3)
  1. ACETAMINOPHEN\HYDROCODONE [Suspect]
     Active Substance: ACETAMINOPHEN\HYDROCODONE
     Indication: Myalgia
     Dosage: UNKNOWN
     Route: 065
     Dates: start: 202205
  2. ACETAMINOPHEN\HYDROCODONE [Suspect]
     Active Substance: ACETAMINOPHEN\HYDROCODONE
     Indication: Arthralgia
  3. LENVIMA [Concomitant]
     Active Substance: LENVATINIB
     Indication: Endometrial cancer
     Dosage: 20 MG
     Route: 065
     Dates: start: 20220505, end: 202208

REACTIONS (6)
  - Hallucination [Unknown]
  - Drug withdrawal syndrome [Unknown]
  - Nightmare [Unknown]
  - Dehydration [Unknown]
  - Decreased appetite [Unknown]
  - Stomatitis [Unknown]

NARRATIVE: CASE EVENT DATE: 20220801
